FAERS Safety Report 7248250-3 (Version None)
Quarter: 2011Q1

REPORT INFORMATION
  Report Type: 
  Country: None (occurrence: None)
  Receive Date: 20110127
  Receipt Date: 20110103
  Transmission Date: 20110831
  Serious: Yes (Hospitalization, Other)
  Sender: FDA-Public Use
  Company Number: US-BAYER-200938155NA

PATIENT
  Sex: Female

DRUGS (2)
  1. YASMIN [Suspect]
     Dosage: UNK
     Dates: start: 20070601, end: 20080601
  2. OCELLA [Suspect]
     Dosage: UNK
     Dates: start: 20081201, end: 20090601

REACTIONS (9)
  - CHOLELITHIASIS [None]
  - ABDOMINAL PAIN [None]
  - VOMITING [None]
  - CHOLECYSTITIS [None]
  - CHEST PAIN [None]
  - PAIN [None]
  - HEPATOMEGALY [None]
  - GALLBLADDER DISORDER [None]
  - NAUSEA [None]
